FAERS Safety Report 5870691-7 (Version None)
Quarter: 2008Q3

REPORT INFORMATION
  Report Type: 
  Country: None (occurrence: None)
  Receive Date: 20080904
  Receipt Date: 20080903
  Transmission Date: 20090109
  Serious: Yes (Other)
  Sender: FDA-Public Use
  Company Number: A0732996A

PATIENT
  Age: 63 Year
  Sex: Male

DRUGS (8)
  1. NICORETTE [Suspect]
     Indication: SMOKING CESSATION THERAPY
     Dosage: 2MG UNKNOWN
     Route: 002
     Dates: start: 20020101
  2. PROZAC [Concomitant]
  3. PRIMATENE MIST [Concomitant]
  4. SUDAFED 12 HOUR [Concomitant]
  5. COMBIVENT [Concomitant]
  6. TYLENOL (CAPLET) [Concomitant]
  7. CLONAZEPAM [Concomitant]
  8. LEVITRA [Concomitant]

REACTIONS (5)
  - ANGER [None]
  - DEPENDENCE [None]
  - INTENTIONAL DRUG MISUSE [None]
  - OBSESSIVE-COMPULSIVE DISORDER [None]
  - OVERDOSE [None]
